FAERS Safety Report 5198109-0 (Version None)
Quarter: 2006Q4

REPORT INFORMATION
  Report Type: 
  Country: None (occurrence: None)
  Receive Date: 20061228
  Receipt Date: 20061208
  Transmission Date: 20070319
  Serious: Yes (Death)
  Sender: FDA-Public Use
  Company Number: WAES 0612USA02296

PATIENT
  Age: 61 Year
  Sex: Male

DRUGS (10)
  1. MEVACOR [Suspect]
     Indication: HYPERCHOLESTEROLAEMIA
     Dosage: 40 MG/DAILY/UNK
     Dates: start: 20060201, end: 20061201
  2. ZESTRIL [Suspect]
     Indication: HYPERTENSION
     Dosage: 20 MG/ DAILY/ PO
     Route: 048
     Dates: end: 20061201
  3. ALBUTEROL [Suspect]
     Indication: CHRONIC OBSTRUCTIVE PULMONARY DISEASE
     Dates: start: 20060815, end: 20061201
  4. ATROVENT [Suspect]
     Indication: CHRONIC OBSTRUCTIVE PULMONARY DISEASE
     Dosage: 144 MICROGM/DAILY/UNK
     Dates: start: 20060925, end: 20061201
  5. XALATAN [Suspect]
     Indication: GLAUCOMA
     Dosage: 1 DROPS/DAILY/UNK
     Dates: end: 20061201
  6. CELEXA [Suspect]
     Indication: DEPRESSION
     Dosage: 10 MG/DAILY/UNK
     Dates: end: 20061201
  7. ASPIRIN [Suspect]
     Indication: PROPHYLAXIS
     Dosage: 325 MG/DAILY/UNK
     Dates: end: 20061201
  8. VITAMIN E [Suspect]
     Indication: ROUTINE HEALTH MAINTENANCE
     Dosage: 400 IU/DAILY/UNK
     Dates: end: 20061201
  9. COUMADIN [Suspect]
     Indication: ATRIAL FIBRILLATION
     Dosage: 5 MG/DAILY/UNK
     Dates: end: 20061201
  10. PLACEBO (UNSPECIFIED) [Concomitant]

REACTIONS (1)
  - CARDIAC ARREST [None]
